FAERS Safety Report 7575109-4 (Version None)
Quarter: 2011Q2

REPORT INFORMATION
  Report Type: 
  Country: None (occurrence: None)
  Receive Date: 20110627
  Receipt Date: 20110622
  Transmission Date: 20111010
  Serious: Yes (Hospitalization, Disabling, Other)
  Sender: FDA-Public Use
  Company Number: US-PFIZER INC-2010150870

PATIENT
  Sex: Female

DRUGS (4)
  1. TEMAZEPAM [Concomitant]
     Indication: INSOMNIA
     Dosage: UNK
     Dates: start: 20060106
  2. ALPRAZOLAM [Concomitant]
     Indication: ANXIETY
     Dosage: UNK
     Dates: start: 20060106
  3. CHANTIX [Suspect]
     Indication: SMOKING CESSATION THERAPY
     Dosage: 1 MG, UNK
     Dates: start: 20080301, end: 20080401
  4. HYDROCODONE [Concomitant]
     Indication: PAIN
     Dosage: UNK
     Dates: start: 20060106

REACTIONS (7)
  - INTENTIONAL OVERDOSE [None]
  - ANXIETY [None]
  - MENTAL DISORDER [None]
  - EMOTIONAL DISTRESS [None]
  - DEPRESSION [None]
  - SUICIDE ATTEMPT [None]
  - PANIC ATTACK [None]
